FAERS Safety Report 19129411 (Version 3)
Quarter: 2021Q2

REPORT INFORMATION
  Report Type: Report from Study
  Country: US (occurrence: US)
  Receive Date: 20210413
  Receipt Date: 20210604
  Transmission Date: 20210717
  Serious: No
  Sender: FDA-Public Use
  Company Number: NVSC2021US081696

PATIENT
  Sex: Female

DRUGS (3)
  1. SPIRONOLACTONE. [Suspect]
     Active Substance: SPIRONOLACTONE
     Indication: PRODUCT USED FOR UNKNOWN INDICATION
     Dosage: UNK
     Route: 065
  2. CARVEDILOL. [Suspect]
     Active Substance: CARVEDILOL
     Indication: PRODUCT USED FOR UNKNOWN INDICATION
     Dosage: UNK
     Route: 065
  3. ENTRESTO [Suspect]
     Active Substance: SACUBITRIL\VALSARTAN
     Indication: PRODUCT USED FOR UNKNOWN INDICATION
     Dosage: 50 MG, BID
     Route: 048
     Dates: start: 20210219

REACTIONS (11)
  - Dehydration [Unknown]
  - Sinusitis [Recovering/Resolving]
  - Cough [Unknown]
  - Hypotension [Unknown]
  - Nasal congestion [Unknown]
  - Hypersensitivity [Unknown]
  - Throat clearing [Unknown]
  - Alopecia [Unknown]
  - Muscular weakness [Unknown]
  - Fatigue [Unknown]
  - Dizziness [Unknown]
